FAERS Safety Report 5390995-4 (Version None)
Quarter: 2007Q3

REPORT INFORMATION
  Report Type: 
  Country: None (occurrence: None)
  Receive Date: 20070716
  Receipt Date: 20051103
  Transmission Date: 20080115
  Serious: Yes (Hospitalization)
  Sender: FDA-Public Use
  Company Number: MPS1-10459

PATIENT
  Age: 10 Year
  Sex: Female
  Weight: 24 kg

DRUGS (2)
  1. ALDURAZYME [Suspect]
     Indication: MUCOPOLYSACCHARIDOSIS I
     Dates: start: 20050525, end: 20051001
  2. ANTIBIOTIC [Concomitant]

REACTIONS (1)
  - ENDOCARDITIS [None]
